FAERS Safety Report 8956708 (Version 1)
Quarter: 2012Q4

REPORT INFORMATION
  Report Type: Spontaneous
  Country: GB (occurrence: None)
  Receive Date: 20121128
  Receipt Date: 20121128
  Transmission Date: 20130627
  Serious: Yes (Hospitalization)
  Sender: FDA-Public Use
  Company Number: 2012ST000141

PATIENT
  Age: 75 Year
  Sex: Female

DRUGS (1)
  1. OMEPRAZOLE (OMEPRAZOLE) [Suspect]
     Indication: NONSTEROIDAL ANTI-INFLAMMATORY ANALGESIC SUPPORTIVE THERAPY

REACTIONS (6)
  - Hypomagnesaemia [None]
  - Grand mal convulsion [None]
  - Pulmonary oedema [None]
  - Laryngeal oedema [None]
  - Circulatory collapse [None]
  - Hypocalcaemia [None]
